FAERS Safety Report 7325738-8 (Version None)
Quarter: 2011Q1

REPORT INFORMATION
  Report Type: 
  Country: None (occurrence: None)
  Receive Date: 20110302
  Receipt Date: 20101029
  Transmission Date: 20110831
  Serious: No
  Sender: FDA-Public Use
  Company Number: US-BAYER-201023282BCC

PATIENT
  Sex: Female
  Weight: 70.455 kg

DRUGS (2)
  1. DROSPIRENONE AND ETHINYL ESTRADIOL [Concomitant]
  2. OAD WOMEN'S [Suspect]
     Indication: VITAMIN SUPPLEMENTATION
     Route: 048

REACTIONS (2)
  - VOMITING [None]
  - NAUSEA [None]
